FAERS Safety Report 4395443-9 (Version None)
Quarter: 2004Q3

REPORT INFORMATION
  Report Type: 
  Country: None (occurrence: None)
  Receive Date: 20040713
  Receipt Date: 20040701
  Transmission Date: 20050211
  Serious: Yes (Other)
  Sender: FDA-Public Use
  Company Number: PHBS2004GR08914

PATIENT
  Sex: Female

DRUGS (2)
  1. DICLOFENAC SODIUM [Suspect]
     Dosage: 75 TO 150 MG/DAY
  2. COLCHICINE [Concomitant]
     Dosage: 100 MG/DAY

REACTIONS (2)
  - IRIDOCYCLITIS [None]
  - MOUTH ULCERATION [None]
